FAERS Safety Report 7114184-8 (Version None)
Quarter: 2010Q4

REPORT INFORMATION
  Report Type: 
  Country: None (occurrence: None)
  Receive Date: 20101119
  Receipt Date: 20101112
  Transmission Date: 20110411
  Serious: Yes (Other)
  Sender: FDA-Public Use
  Company Number: US-US-EMD SERONO, INC.-231834J10USA

PATIENT
  Sex: Male

DRUGS (3)
  1. REBIF [Suspect]
     Indication: MULTIPLE SCLEROSIS
     Route: 058
     Dates: start: 20081216
  2. TYLENOL (CAPLET) [Concomitant]
     Indication: PREMEDICATION
  3. ADVIL [Concomitant]
     Indication: PREMEDICATION

REACTIONS (2)
  - HEPATIC STEATOSIS [None]
  - INFLUENZA LIKE ILLNESS [None]
